FAERS Safety Report 19636293 (Version 2)
Quarter: 2021Q3

REPORT INFORMATION
  Report Type: Spontaneous
  Country: JP (occurrence: JP)
  Receive Date: 20210730
  Receipt Date: 20210827
  Transmission Date: 20211014
  Serious: Yes (Other)
  Sender: FDA-Public Use
  Company Number: JP-GLAXOSMITHKLINE-JP2021JPN148848

PATIENT
  Age: 0 Day
  Sex: Male

DRUGS (19)
  1. PREDNISOLONE TABLETS [Concomitant]
     Active Substance: PREDNISOLONE
     Indication: RHEUMATOID ARTHRITIS
     Dosage: 5 MG, 1D
     Route: 064
  2. IMIGRAN?T [Suspect]
     Active Substance: SUMATRIPTAN SUCCINATE
     Dosage: 50 MG, QD
     Route: 064
     Dates: start: 201812, end: 20181226
  3. CYMBALTA [Concomitant]
     Active Substance: DULOXETINE HYDROCHLORIDE
     Indication: FIBROMYALGIA
     Dosage: UNK
     Route: 064
     Dates: end: 20180821
  4. IMIGRAN?T [Suspect]
     Active Substance: SUMATRIPTAN SUCCINATE
     Indication: HEADACHE
     Dosage: 50 MG, TID
     Route: 064
     Dates: start: 20181220, end: 20181220
  5. GOSHUYUTO [Concomitant]
     Active Substance: HERBALS
     Indication: MIGRAINE
  6. NEUROTROPIN [Concomitant]
     Active Substance: NEUROTROPIN
     Indication: FIBROMYALGIA
     Dosage: UNK
     Route: 064
     Dates: end: 20180821
  7. BRUFEN (IBUPROFEN) [Concomitant]
     Active Substance: IBUPROFEN
     Indication: FIBROMYALGIA
     Dosage: UNK
     Route: 064
     Dates: end: 20180821
  8. ACELIO [Concomitant]
     Active Substance: ACETAMINOPHEN
     Indication: HEADACHE
     Dosage: 1000?2000 UG PER DAY
     Route: 064
     Dates: start: 20181218, end: 20181230
  9. IMIGRAN?T [Suspect]
     Active Substance: SUMATRIPTAN SUCCINATE
     Indication: MIGRAINE
     Dosage: 50 MG, BID
     Route: 064
     Dates: start: 201812, end: 201812
  10. GOSHUYUTO [Concomitant]
     Active Substance: HERBALS
     Indication: HEADACHE
     Dosage: 7.5 G, 1D
     Route: 064
     Dates: start: 20181220, end: 20181227
  11. GOREISAN [Concomitant]
     Active Substance: HERBALS
     Indication: HEADACHE
     Dosage: 7.5 G, 1D
     Route: 064
     Dates: start: 20181220, end: 20181227
  12. ACELIO [Concomitant]
     Active Substance: ACETAMINOPHEN
     Indication: MIGRAINE
  13. LYRICA [Concomitant]
     Active Substance: PREGABALIN
     Indication: FIBROMYALGIA
     Dosage: UNK
     Route: 064
     Dates: end: 20180821
  14. GOREISAN [Concomitant]
     Active Substance: HERBALS
     Indication: MIGRAINE
  15. CIMZIA [Concomitant]
     Active Substance: CERTOLIZUMAB PEGOL
     Indication: RHEUMATOID ARTHRITIS
     Dosage: UNK
     Route: 064
     Dates: start: 20180806, end: 20181204
  16. RITODRINE HYDROCHLORIDE [Concomitant]
     Active Substance: RITODRINE HYDROCHLORIDE
     Indication: PREMATURE LABOUR
     Dosage: 100?50 UG PER MIN
     Route: 064
     Dates: start: 20181217, end: 20190112
  17. CEFMETAZOLE SODIUM [Concomitant]
     Active Substance: CEFMETAZOLE SODIUM
     Indication: PREMATURE RUPTURE OF MEMBRANES
     Dosage: 2 G, 1D
     Route: 064
     Dates: start: 20181220, end: 20190107
  18. VICCILLIN [Concomitant]
     Active Substance: AMPICILLIN
     Indication: PREMATURE RUPTURE OF MEMBRANES
     Dosage: 4 G, 1D
     Route: 064
     Dates: start: 20181217, end: 20181220
  19. RINDERON [Concomitant]
     Indication: PREMATURE LABOUR
     Dosage: 12 MG, 1D
     Route: 064
     Dates: start: 20181217, end: 20181218

REACTIONS (6)
  - Apnoeic attack [Recovered/Resolved]
  - Nasopharyngitis [Recovered/Resolved]
  - Hyperbilirubinaemia [Recovered/Resolved]
  - Foetal exposure during pregnancy [Unknown]
  - Low birth weight baby [Recovering/Resolving]
  - Anaemia [Recovering/Resolving]

NARRATIVE: CASE EVENT DATE: 20190112
